FAERS Safety Report 8055776-1 (Version None)
Quarter: 2012Q1

REPORT INFORMATION
  Report Type: 
  Country: None (occurrence: None)
  Receive Date: 20120119
  Receipt Date: 20120113
  Transmission Date: 20120608
  Serious: Yes (Hospitalization)
  Sender: FDA-Public Use
  Company Number: JP-SANOFI-AVENTIS-199811084NHMR

PATIENT
  Age: 76 Year
  Sex: Male
  Weight: 45.4 kg

DRUGS (9)
  1. FLUNASE [Concomitant]
     Indication: CHRONIC SINUSITIS
     Route: 045
     Dates: start: 19980301
  2. SPARA [Concomitant]
     Route: 048
     Dates: start: 19980521, end: 19980603
  3. EPINASTINE HYDROCHLORIDE [Concomitant]
     Route: 048
     Dates: start: 19980601, end: 19980603
  4. ALL OTHER THERAPEUTIC PRODUCTS [Concomitant]
     Indication: CHRONIC SINUSITIS
     Route: 048
     Dates: start: 19980301
  5. BASEN [Concomitant]
     Indication: DIABETES MELLITUS
     Route: 048
     Dates: start: 19960101, end: 19980607
  6. MUCODYNE [Concomitant]
     Indication: CHRONIC SINUSITIS
     Route: 048
     Dates: start: 19980301
  7. INSULIN [Concomitant]
     Indication: DIABETES MELLITUS
  8. RULID [Concomitant]
     Indication: CHRONIC SINUSITIS
     Route: 048
     Dates: start: 19980301
  9. GLYBURIDE [Suspect]
     Indication: DIABETES MELLITUS
     Route: 048
     Dates: start: 19980608

REACTIONS (5)
  - INTERSTITIAL LUNG DISEASE [None]
  - DYSPNOEA [None]
  - HYPOXIA [None]
  - FATIGUE [None]
  - PYREXIA [None]
